FAERS Safety Report 16727085 (Version 2)
Quarter: 2019Q3

REPORT INFORMATION
  Report Type: Report from Study
  Country: US (occurrence: US)
  Receive Date: 20190822
  Receipt Date: 20190827
  Transmission Date: 20191005
  Serious: No
  Sender: FDA-Public Use
  Company Number: PHEH2019US034380

PATIENT
  Sex: Female
  Weight: 105.6 kg

DRUGS (1)
  1. COSENTYX [Suspect]
     Active Substance: SECUKINUMAB
     Indication: PSORIATIC ARTHROPATHY
     Dosage: 300 MG, QMO
     Route: 058
     Dates: start: 20190128, end: 20190806

REACTIONS (1)
  - Oropharyngeal candidiasis [Unknown]

NARRATIVE: CASE EVENT DATE: 20190801
